FAERS Safety Report 9846292 (Version 2)
Quarter: 2014Q2

REPORT INFORMATION
  Report Type: Spontaneous
  Country: US (occurrence: US)
  Receive Date: 20140127
  Receipt Date: 20140411
  Transmission Date: 20141212
  Serious: Yes (Hospitalization)
  Sender: FDA-Public Use
  Company Number: US-BAYER-2014-011062

PATIENT
  Age: 37 Year
  Sex: Female
  Weight: 58.96 kg

DRUGS (8)
  1. BEYAZ [Suspect]
     Indication: CONTRACEPTION
     Dosage: UNK
     Dates: start: 201102, end: 201111
  2. OCELLA [Suspect]
     Indication: CONTRACEPTION
     Dosage: UNK
     Dates: start: 200901, end: 200903
  3. YASMIN [Suspect]
     Indication: CONTRACEPTION
     Dosage: UNK
     Dates: start: 200612, end: 200901
  4. YAZ [Suspect]
     Dosage: UNK
     Dates: start: 200612, end: 200903
  5. PEPTO-BISMOL [Concomitant]
     Indication: DIARRHOEA
     Dosage: UNK UNK, PRN
  6. PREVACID [Concomitant]
     Dosage: 30 MG, UNK
     Route: 048
  7. KEPPRA [Concomitant]
     Route: 042
  8. MYLANTA [CALCIUM CARBONATE] [Concomitant]

REACTIONS (8)
  - Cerebrovascular accident [None]
  - Injury [None]
  - Pain [None]
  - Emotional distress [None]
  - Depression [None]
  - Fear of death [None]
  - Nervousness [None]
  - Muscular weakness [None]
